FAERS Safety Report 4758092-6 (Version None)
Quarter: 2005Q3

REPORT INFORMATION
  Report Type: 
  Country: None (occurrence: None)
  Receive Date: 20050829
  Receipt Date: 20050818
  Transmission Date: 20060218
  Serious: Yes (Other)
  Sender: FDA-Public Use
  Company Number: 2005117876

PATIENT
  Sex: Male

DRUGS (7)
  1. LONITEN [Suspect]
     Indication: HYPERTENSION
     Dosage: (5 MG), ORAL
     Route: 048
     Dates: start: 20050730
  2. ACEBUTOLOL HCL [Concomitant]
  3. CALCIUM CARBONATE (CALCIUM CARBONATE) [Concomitant]
  4. FOLIC ACID [Concomitant]
  5. EPOETIN ALFA (EPOETIN ALFA) [Concomitant]
  6. ALLOPURINOL [Concomitant]
  7. FUROSEMIDE [Concomitant]

REACTIONS (1)
  - ANAEMIA [None]
